FAERS Safety Report 7579485-8 (Version None)
Quarter: 2011Q2

REPORT INFORMATION
  Report Type: 
  Country: None (occurrence: None)
  Receive Date: 20110629
  Receipt Date: 20090930
  Transmission Date: 20111010
  Serious: Yes (Other)
  Sender: FDA-Public Use
  Company Number: US-BAYER-200934418NA

PATIENT
  Age: 77 Year
  Sex: Male
  Weight: 90.703 kg

DRUGS (13)
  1. TRIAMTERENE [Concomitant]
     Dosage: 75/50 MG
  2. COZAAR [Concomitant]
     Dosage: 25 MG, QD
     Route: 048
  3. LOPRESSOR [Concomitant]
     Dosage: 25 MG, BID
     Route: 048
  4. MANNITOL [Concomitant]
     Dosage: 150 CC
     Dates: start: 20070830, end: 20070830
  5. PLAVIX [Concomitant]
     Dosage: 75 MG, QD
     Route: 048
  6. TRASYLOL [Suspect]
     Indication: CORONARY ARTERY BYPASS
     Dosage: 200 ML PUMP PRIME
     Route: 042
     Dates: start: 20070830, end: 20070830
  7. VYTORIN [Concomitant]
     Dosage: 10 MG/80 MG
     Route: 048
  8. HEPARIN [Concomitant]
     Dosage: 25,000 UNITS
     Dates: start: 20070830, end: 20070830
  9. ATENOLOL [Concomitant]
     Dosage: 50 MG, QD
     Route: 048
  10. LASIX [Concomitant]
     Dosage: 20 MG PRN
     Route: 048
  11. MORPHINE [Concomitant]
     Dosage: PRN
     Route: 042
  12. LIDOCAINE [Concomitant]
     Dosage: 100 MG, UNK
     Dates: start: 20070830, end: 20070830
  13. ZOCOR [Concomitant]
     Dosage: 80 MG, QD

REACTIONS (10)
  - INJURY [None]
  - UNEVALUABLE EVENT [None]
  - RENAL FAILURE [None]
  - PAIN [None]
  - FEAR [None]
  - RENAL IMPAIRMENT [None]
  - RENAL INJURY [None]
  - STRESS [None]
  - EMOTIONAL DISTRESS [None]
  - ANXIETY [None]
